FAERS Safety Report 9282610 (Version 2)
Quarter: 2013Q3

REPORT INFORMATION
  Report Type: Spontaneous
  Country: FR (occurrence: FR)
  Receive Date: 20130510
  Receipt Date: 20130710
  Transmission Date: 20140515
  Serious: Yes (Hospitalization)
  Sender: FDA-Public Use
  Company Number: FR-PFIZER INC-2013137892

PATIENT
  Age: 62 Year
  Sex: Female

DRUGS (15)
  1. SOLU-MEDROL [Suspect]
     Indication: B-CELL LYMPHOMA
     Dosage: UNK, CYCLIC
     Route: 042
     Dates: start: 20120828, end: 20130124
  2. DOXORUBICIN HYDROCHLORIDE [Suspect]
     Indication: B-CELL LYMPHOMA
     Dosage: UNK, CYCLIC
     Route: 042
     Dates: start: 20120828, end: 20130124
  3. VINCRISTINE SULFATE [Suspect]
     Indication: B-CELL LYMPHOMA
     Dosage: UNK, CYCLIC
     Route: 042
     Dates: start: 20120828, end: 20130124
  4. CYCLOPHOSPHAMIDE [Suspect]
     Indication: B-CELL LYMPHOMA
     Dosage: UNK, CYCLIC
     Route: 042
     Dates: start: 20120828, end: 20130124
  5. RITUXIMAB [Suspect]
     Indication: B-CELL LYMPHOMA
     Dosage: UNK, CYCLIC
     Route: 042
     Dates: start: 20120828, end: 20130124
  6. LASILIX [Concomitant]
     Dosage: UNK
  7. JANUVIA [Concomitant]
     Dosage: UNK
  8. DIFFU K [Concomitant]
     Dosage: UNK
  9. ZELITREX [Concomitant]
     Dosage: UNK
  10. GRANOCYTE [Concomitant]
     Dosage: UNK
  11. ALLOPURINOL [Concomitant]
     Dosage: UNK
  12. FRESUBIN [Concomitant]
     Dosage: UNK
  13. VERATRAN [Concomitant]
     Indication: ANXIETY
     Dosage: UNK
  14. VERATRAN [Concomitant]
     Indication: INSOMNIA
  15. PRIMPERAN [Concomitant]
     Dosage: UNK, AS NEEDED

REACTIONS (4)
  - Thrombocytopenia [Recovered/Resolved]
  - Leukopenia [Recovered/Resolved]
  - Neutropenia [Recovered/Resolved]
  - Anaemia [Recovered/Resolved]
